FAERS Safety Report 24685730 (Version 1)
Quarter: 2024Q4

REPORT INFORMATION
  Report Type: Spontaneous
  Country: US (occurrence: None)
  Receive Date: 20241127
  Receipt Date: 20241127
  Transmission Date: 20250115
  Serious: Yes (Hospitalization)
  Sender: Public
  Company Number: None

PATIENT
  Age: 57 Year
  Sex: Female
  Weight: 109.32 kg

DRUGS (5)
  1. WINREVAIR [Suspect]
     Active Substance: SOTATERCEPT-CSRK
     Dosage: 1.5ML   EVERY 3 WEEKS SQ?
     Route: 058
     Dates: start: 202405
  2. REMODULIN [Suspect]
     Active Substance: TREPROSTINIL
  3. TADALAFIL [Concomitant]
  4. OPSUMIT [Concomitant]
     Active Substance: MACITENTAN
  5. REMODULIN MDV [Concomitant]

REACTIONS (1)
  - Therapeutic procedure [None]

NARRATIVE: CASE EVENT DATE: 20241126
